FAERS Safety Report 15357805 (Version 1)
Quarter: 2018Q3

REPORT INFORMATION
  Report Type: Spontaneous
  Country: US (occurrence: US)
  Receive Date: 20180906
  Receipt Date: 20180906
  Transmission Date: 20181010
  Serious: Yes (Other)
  Sender: FDA-Public Use
  Company Number: US-LUNDBECK-DKLU2053996

PATIENT
  Age: 88 Year
  Sex: Male

DRUGS (1)
  1. NORTHERA [Suspect]
     Active Substance: DROXIDOPA
     Indication: ORTHOSTATIC HYPOTENSION
     Route: 048

REACTIONS (9)
  - Blood pressure decreased [Unknown]
  - Fall [Unknown]
  - Basal cell carcinoma [Unknown]
  - Head injury [Unknown]
  - Hallucination, visual [Unknown]
  - Headache [Unknown]
  - Loss of consciousness [Unknown]
  - Dizziness [Unknown]
  - Feeling abnormal [Unknown]

NARRATIVE: CASE EVENT DATE: 20180829
